FAERS Safety Report 18763697 (Version 1)
Quarter: 2021Q1

REPORT INFORMATION
  Report Type: Spontaneous
  Country: US (occurrence: US)
  Receive Date: 20210120
  Receipt Date: 20210120
  Transmission Date: 20210419
  Serious: No
  Sender: FDA-Public Use
  Company Number: US-TRIS PHARMA, INC.-21US009242

PATIENT

DRUGS (1)
  1. QUILLIVANT XR [Suspect]
     Active Substance: METHYLPHENIDATE HYDROCHLORIDE
     Indication: ATTENTION DEFICIT HYPERACTIVITY DISORDER
     Dosage: 4 MILLILITER, QD
     Route: 048
     Dates: start: 20210113, end: 202101

REACTIONS (7)
  - Therapeutic response shortened [Unknown]
  - Thumb sucking [Recovered/Resolved]
  - Psychomotor hyperactivity [Recovered/Resolved]
  - Wrong technique in product usage process [Unknown]
  - Insomnia [Recovered/Resolved]
  - Lip erythema [Recovered/Resolved]
  - Compulsive lip biting [Recovered/Resolved]

NARRATIVE: CASE EVENT DATE: 20210113
